APPROVED DRUG PRODUCT: FINASTERIDE
Active Ingredient: FINASTERIDE
Strength: 5MG
Dosage Form/Route: TABLET;ORAL
Application: A077251 | Product #001
Applicant: GEDEON RICHTER USA INC
Approved: Dec 22, 2006 | RLD: No | RS: No | Type: DISCN